FAERS Safety Report 8076429-X (Version None)
Quarter: 2012Q1

REPORT INFORMATION
  Report Type: 
  Country: None (occurrence: None)
  Receive Date: 20120125
  Receipt Date: 20120125
  Transmission Date: 20120608
  Serious: Yes (Hospitalization)
  Sender: FDA-Public Use
  Company Number: None

PATIENT
  Sex: Male
  Weight: 11.9 kg

DRUGS (3)
  1. DEXAMETHASONE [Suspect]
     Dosage: 12 MG
  2. VINCRISTINE SULFATE [Suspect]
     Dosage: .6 MG
  3. METHOTREXATE [Suspect]
     Dosage: 10 MG

REACTIONS (3)
  - TRANSAMINASES INCREASED [None]
  - BLOOD CULTURE POSITIVE [None]
  - BACTERIAL INFECTION [None]
